FAERS Safety Report 21975517 (Version 1)
Quarter: 2023Q1

REPORT INFORMATION
  Report Type: Spontaneous
  Country: US (occurrence: US)
  Receive Date: 20230210
  Receipt Date: 20230210
  Transmission Date: 20230418
  Serious: Yes (Other)
  Sender: FDA-Public Use
  Company Number: US-MLMSERVICE-20230126-4062185-1

PATIENT
  Sex: Female

DRUGS (1)
  1. PREDNISONE [Suspect]
     Active Substance: PREDNISONE
     Indication: Acute febrile neutrophilic dermatosis
     Dosage: UNK
     Route: 065

REACTIONS (4)
  - Spinal fracture [Unknown]
  - Ecchymosis [Unknown]
  - Osteopenia [Unknown]
  - Weight increased [Unknown]
